FAERS Safety Report 16767576 (Version 1)
Quarter: 2019Q4

REPORT INFORMATION
  Report Type: Spontaneous
  Country: US (occurrence: US)
  Receive Date: 20190903
  Receipt Date: 20190903
  Transmission Date: 20200122
  Serious: Yes (Other)
  Sender: FDA-Public Use
  Company Number: None

PATIENT
  Age: 70 Year
  Sex: Female

DRUGS (4)
  1. VANCOMYCIN, / METHOTREXATE [Concomitant]
  2. LISINOPRIL/PROCHLORPER [Concomitant]
  3. FOLIC ACID/ HEMATINIC/FA [Concomitant]
  4. ENBREL [Suspect]
     Active Substance: ETANERCEPT
     Indication: RHEUMATOID ARTHRITIS
     Dosage: ?          OTHER FREQUENCY:ONCE A WEEK;?
     Route: 058
     Dates: start: 20171219, end: 20190831

REACTIONS (1)
  - Lymphoma [None]
